FAERS Safety Report 9729946 (Version 1)
Quarter: 2013Q4

REPORT INFORMATION
  Report Type: Spontaneous
  Country: IR (occurrence: None)
  Receive Date: 20131203
  Receipt Date: 20131203
  Transmission Date: 20140711
  Serious: Yes (Hospitalization)
  Sender: FDA-Public Use
  Company Number: 2013P1021419

PATIENT
  Age: 39 Year
  Sex: Female

DRUGS (6)
  1. LIDOCAINE [Suspect]
     Indication: NERVE BLOCK
     Dosage: 1.8 ML; X1
  2. LIDOCAINE [Suspect]
     Indication: ENDODONTIC PROCEDURE
     Dosage: 1.8 ML; X1
  3. DYSPORT [Suspect]
     Indication: TORTICOLLIS
     Dosage: 500 IU; X1
  4. TRIHEXYPHENIDYIL [Concomitant]
  5. CLONAZEPAM [Concomitant]
  6. EPINEPHRINE [Concomitant]

REACTIONS (2)
  - Dysphagia [None]
  - Dysphonia [None]
